FAERS Safety Report 12322706 (Version 9)
Quarter: 2016Q3

REPORT INFORMATION
  Report Type: Spontaneous
  Country: US (occurrence: US)
  Receive Date: 20160502
  Receipt Date: 20160915
  Transmission Date: 20161109
  Serious: Yes (Other)
  Sender: FDA-Public Use
  Company Number: US-PFIZER INC-2016223940

PATIENT
  Age: 65 Year
  Sex: Male
  Weight: 99.79 kg

DRUGS (31)
  1. VITAMIN D [Concomitant]
     Active Substance: CHOLECALCIFEROL
     Indication: INFLUENZA
     Dosage: 5000 IU, 1X/DAY
     Route: 048
  2. LYRICA [Suspect]
     Active Substance: PREGABALIN
     Indication: FIBROMYALGIA
     Dosage: 75 MG, 2X/DAY
     Route: 048
     Dates: start: 20160427
  3. ATENOLOL. [Concomitant]
     Active Substance: ATENOLOL
     Indication: HYPERTENSION
  4. POTASSIUM CHLORIDE. [Concomitant]
     Active Substance: POTASSIUM CHLORIDE
     Indication: CARDIAC DISORDER
     Dosage: 10 MEQ, 1X/DAY (10 MEQ WHICH WAS ONE AND HALF TEASPOON AT BED TIME IN NIGHT )
  5. ATENOLOL. [Concomitant]
     Active Substance: ATENOLOL
     Indication: BLOOD PRESSURE ABNORMAL
  6. VITAMIN D [Concomitant]
     Active Substance: CHOLECALCIFEROL
     Indication: VITAMIN D DECREASED
     Dosage: 1000 IU, UNK
  7. MELATONIN [Concomitant]
     Active Substance: MELATONIN
     Indication: PAIN
     Dosage: 10 MG, 1X/DAY (ONE AT BEDTIME )
     Route: 048
  8. NITRO [Concomitant]
     Active Substance: NITROGLYCERIN
     Indication: CARDIAC DISORDER
     Dosage: 0.4 MG, AS NEEDED
     Dates: start: 199212
  9. PAMELOR [Concomitant]
     Active Substance: NORTRIPTYLINE HYDROCHLORIDE
     Indication: BRAIN INJURY
     Dosage: 50 MG, 1X/DAY (AT BED TIME)
     Route: 048
  10. POTASSIUM CHLORIDE. [Concomitant]
     Active Substance: POTASSIUM CHLORIDE
     Dosage: 1 MG, 2X/DAY
     Route: 048
  11. LYRICA [Suspect]
     Active Substance: PREGABALIN
     Dosage: 25 MG, UNK
  12. LYRICA [Suspect]
     Active Substance: PREGABALIN
     Dosage: 200 MG, 2X/DAY
     Dates: start: 20160831
  13. WELLBUTRIN [Concomitant]
     Active Substance: BUPROPION HYDROCHLORIDE
     Dosage: 150 MG, 3X/DAY
  14. WELLBUTRIN [Concomitant]
     Active Substance: BUPROPION HYDROCHLORIDE
     Indication: BRAIN INJURY
     Dosage: 450 MG, DAILY (150 MG, ONE IN THE MORNING AND 2 AT BEDTIME)
     Route: 048
  15. VITAMIN B12 [Concomitant]
     Active Substance: CYANOCOBALAMIN
     Indication: FIBROMYALGIA
     Dosage: 1000 UG, 1X/DAY (AT BEDTIME)
     Route: 048
  16. DESOXIMETASON [Concomitant]
     Indication: PRURITUS
     Dosage: UNK, AS NEEDED
     Dates: start: 2014
  17. LYRICA [Suspect]
     Active Substance: PREGABALIN
     Dosage: 150 MG, UNK
     Dates: start: 20160607
  18. LYRICA [Suspect]
     Active Substance: PREGABALIN
     Dosage: 150 MG, 2X/DAY (23 DAYS LATER)
  19. LIPITOR [Concomitant]
     Active Substance: ATORVASTATIN CALCIUM
     Indication: BLOOD CHOLESTEROL INCREASED
     Dosage: 40 MG, 1X/DAY (AT BED TIME)
     Route: 048
     Dates: start: 2015
  20. LIPITOR [Concomitant]
     Active Substance: ATORVASTATIN CALCIUM
     Indication: BLOOD CHOLESTEROL ABNORMAL
     Dosage: 40 MG, 1X/DAY
  21. KLONOPIN [Concomitant]
     Active Substance: CLONAZEPAM
     Indication: ANXIETY
     Dosage: 2 MG, AS NEEDED (1 MG TABLET, TAKES 2 MG IN DAY AS NEEDED)
  22. ENALAPRIL [Concomitant]
     Active Substance: ENALAPRIL
     Dosage: 5 MG, 2X/DAY
     Route: 048
     Dates: start: 2011
  23. LYRICA [Suspect]
     Active Substance: PREGABALIN
     Dosage: 150 MG, 2X/DAY
     Dates: start: 20160516
  24. NITROSTAT [Concomitant]
     Active Substance: NITROGLYCERIN
     Indication: CHEST PAIN
     Dosage: 0.1 MG, AS NEEDED (DAILY)
  25. MELATONIN [Concomitant]
     Active Substance: MELATONIN
     Indication: SLEEP DISORDER
  26. FUROSEMIDE. [Concomitant]
     Active Substance: FUROSEMIDE
     Indication: OEDEMA
     Dosage: 20 MG, 2X/DAY
     Dates: start: 2014
  27. METFORMIN [Concomitant]
     Active Substance: METFORMIN HYDROCHLORIDE
     Indication: DIABETES MELLITUS
     Dosage: 500 MG, 1X/DAY (ONE TABLET AT NIGHT)
     Route: 048
     Dates: start: 2013
  28. ATENOLOL. [Concomitant]
     Active Substance: ATENOLOL
     Indication: CHEST PAIN
     Dosage: 25 MG, 2X/DAY (ONE IN MORNING, ONE AT NIGHT)
     Route: 048
  29. KLONOPIN [Concomitant]
     Active Substance: CLONAZEPAM
     Dosage: 1 MG, 2X/DAY
  30. POTASSIUM CHLORIDE. [Concomitant]
     Active Substance: POTASSIUM CHLORIDE
     Dosage: 10 MEQ, 1X/DAY (10 MEQ WHICH WAS ONE AND HALF TEASPOON A NIGHT WITH FOOD DILUTED)
     Route: 060
  31. VITAMIN C [Concomitant]
     Active Substance: ASCORBIC ACID
     Dosage: 500 MG, 1X/DAY (AT BEDTIME)
     Route: 048

REACTIONS (16)
  - Delirium [Unknown]
  - Back pain [Recovered/Resolved]
  - Eye disorder [Unknown]
  - Neck pain [Unknown]
  - Insomnia [Recovered/Resolved]
  - Drug tolerance [Unknown]
  - Drug ineffective [Unknown]
  - Fatigue [Not Recovered/Not Resolved]
  - Weight increased [Unknown]
  - Loss of consciousness [Unknown]
  - Nausea [Unknown]
  - Musculoskeletal pain [Unknown]
  - Pain [Not Recovered/Not Resolved]
  - Somnolence [Not Recovered/Not Resolved]
  - Hangover [Unknown]
  - Breakthrough pain [Unknown]

NARRATIVE: CASE EVENT DATE: 20160519
